FAERS Safety Report 8470191-4 (Version None)
Quarter: 2012Q2

REPORT INFORMATION
  Report Type: 
  Country: None (occurrence: None)
  Receive Date: 20120621
  Receipt Date: 20120621
  Transmission Date: 20120825
  Serious: Yes (Other)
  Sender: FDA-Public Use
  Company Number: None

PATIENT
  Sex: Female

DRUGS (2)
  1. LYRICA [Concomitant]
  2. CYMBALTA [Suspect]
     Indication: FIBROMYALGIA
     Dosage: 60 MG ONCE A DAY PO
     Route: 048
     Dates: start: 20091201, end: 20120220

REACTIONS (17)
  - MOUTH ULCERATION [None]
  - OEDEMA MOUTH [None]
  - LIP OEDEMA [None]
  - SWOLLEN TONGUE [None]
  - RASH [None]
  - EFFUSION [None]
  - MIDDLE EAR EFFUSION [None]
  - HAEMORRHAGE [None]
  - BLOOD PRESSURE INCREASED [None]
  - CHOKING SENSATION [None]
  - BLISTER [None]
  - HERPES ZOSTER [None]
  - BEDRIDDEN [None]
  - TOOTH EXTRACTION [None]
  - EYELID DISORDER [None]
  - PAIN [None]
  - SKIN EXFOLIATION [None]
